FAERS Safety Report 6947298-3 (Version None)
Quarter: 2010Q3

REPORT INFORMATION
  Report Type: 
  Country: None (occurrence: None)
  Receive Date: 20100825
  Receipt Date: 20100819
  Transmission Date: 20110219
  Serious: Yes (Other)
  Sender: FDA-Public Use
  Company Number: TRP_07195_2010

PATIENT
  Sex: Female

DRUGS (2)
  1. RIBASPHERE [Suspect]
     Indication: PRODUCT USED FOR UNKNOWN INDICATION
     Dosage: DF
  2. PEGASYS [Suspect]
     Indication: PRODUCT USED FOR UNKNOWN INDICATION
     Dosage: DF

REACTIONS (7)
  - CHEST PAIN [None]
  - DYSPNOEA [None]
  - HERPES SIMPLEX [None]
  - HOMICIDAL IDEATION [None]
  - HYPOAESTHESIA [None]
  - IRRITABILITY [None]
  - PANIC ATTACK [None]
